FAERS Safety Report 14110016 (Version 1)
Quarter: 2017Q4

REPORT INFORMATION
  Report Type: Other
  Country: CA (occurrence: CA)
  Receive Date: 20171020
  Receipt Date: 20171020
  Transmission Date: 20180321
  Serious: Yes (Other)
  Sender: FDA-Public Use
  Company Number: CA-APOTEX-2017AP019833

PATIENT
  Age: 4 Year
  Sex: Male

DRUGS (1)
  1. APO-RISPERIDONE [Suspect]
     Active Substance: RISPERIDONE
     Indication: ATTENTION DEFICIT/HYPERACTIVITY DISORDER
     Dosage: 3 ML, UNK
     Route: 065

REACTIONS (9)
  - Abnormal behaviour [Unknown]
  - Drug dispensing error [Unknown]
  - Drooling [Unknown]
  - Accidental overdose [Unknown]
  - Dysstasia [Unknown]
  - Off label use [Unknown]
  - Viral infection [Unknown]
  - Muscular weakness [Unknown]
  - Product use in unapproved indication [Unknown]
